FAERS Safety Report 20758890 (Version 2)
Quarter: 2022Q2

REPORT INFORMATION
  Report Type: Spontaneous
  Country: US (occurrence: US)
  Receive Date: 20220427
  Receipt Date: 20220427
  Transmission Date: 20220721
  Serious: Yes (Other)
  Sender: FDA-Public Use
  Company Number: US-Amarin Pharma, Inc.-2022AMR001006

PATIENT
  Age: 78 Year
  Sex: Male
  Weight: 87.09 kg

DRUGS (14)
  1. VASCEPA [Suspect]
     Active Substance: ICOSAPENT ETHYL
     Indication: Arteriosclerosis
     Route: 048
     Dates: start: 2019
  2. VASCEPA [Suspect]
     Active Substance: ICOSAPENT ETHYL
     Indication: Blood cholesterol increased
  3. QUINAPRIL [Concomitant]
     Active Substance: QUINAPRIL
     Indication: Hypertension
  4. CRESTOR [Concomitant]
     Active Substance: ROSUVASTATIN CALCIUM
     Indication: Blood cholesterol increased
  5. ULORIC [Concomitant]
     Active Substance: FEBUXOSTAT
     Indication: Blood uric acid increased
  6. SODIUM BICARBONATE [Concomitant]
     Active Substance: SODIUM BICARBONATE
     Indication: Acidosis
  7. CITRUCEL [Concomitant]
     Active Substance: METHYLCELLULOSE (4000 MPA.S)
     Indication: Supplementation therapy
  8. OMEPRAZOLE [Concomitant]
     Active Substance: OMEPRAZOLE
     Indication: Gastrooesophageal reflux disease
  9. CURAMED [Concomitant]
     Indication: Cardiovascular event prophylaxis
  10. VITAMIN D3 [Concomitant]
     Active Substance: CHOLECALCIFEROL
  11. Mature multi vitamins [Concomitant]
  12. VITAMIN B12 [Concomitant]
     Active Substance: CYANOCOBALAMIN
     Indication: Neuropathy peripheral
     Dosage: 1/2 TABLET DAILY
  13. CALTRATE [Concomitant]
     Active Substance: CALCIUM CARBONATE
     Indication: Prophylaxis
  14. SOTALOL [Concomitant]
     Active Substance: SOTALOL
     Dates: end: 20220413

REACTIONS (7)
  - Atrial fibrillation [Recovered/Resolved]
  - Atrial flutter [Recovered/Resolved]
  - Cardiac operation [Recovered/Resolved]
  - Cardiac ablation [Recovered/Resolved]
  - Product odour abnormal [Unknown]
  - Product physical issue [Unknown]
  - Product colour issue [Unknown]

NARRATIVE: CASE EVENT DATE: 20200101
